FAERS Safety Report 7967588-5 (Version None)
Quarter: 2011Q4

REPORT INFORMATION
  Report Type: 
  Country: None (occurrence: None)
  Receive Date: 20111209
  Receipt Date: 20111206
  Transmission Date: 20120403
  Serious: No
  Sender: FDA-Public Use
  Company Number: US-B.I. PHARMACEUTICALS,INC./RIDGEFIELD-2011-BP-27574BP

PATIENT
  Age: 68 Year
  Sex: Female

DRUGS (2)
  1. TRADJENTA [Suspect]
     Dosage: 5 MG
     Dates: start: 20111201, end: 20111201
  2. COZAAR [Concomitant]

REACTIONS (1)
  - RASH [None]
